FAERS Safety Report 12487697 (Version 1)
Quarter: 2016Q2

REPORT INFORMATION
  Report Type: Report from Study
  Country: US (occurrence: US)
  Receive Date: 20160622
  Receipt Date: 20160622
  Transmission Date: 20160815
  Serious: Yes (Other)
  Sender: FDA-Public Use
  Company Number: US-JAZZ-2014-US-019357

PATIENT
  Age: 1 Year
  Sex: Male
  Weight: 13 kg

DRUGS (44)
  1. MAGNESIUM SULFATE. [Concomitant]
     Active Substance: MAGNESIUM SULFATE
     Indication: HYPOMAGNESAEMIA
     Dosage: 600 MG
     Route: 042
     Dates: start: 20140912, end: 20140912
  2. MORPHINE [Concomitant]
     Active Substance: MORPHINE
     Indication: PAIN
     Dosage: 1.2 MG
     Route: 042
     Dates: start: 20140913, end: 20140913
  3. MYCOPHENOLATE MOFETIL. [Concomitant]
     Active Substance: MYCOPHENOLATE MOFETIL
     Indication: PROPHYLAXIS AGAINST GRAFT VERSUS HOST DISEASE
     Dosage: 360 MG
     Route: 042
     Dates: start: 20140909, end: 20140912
  4. SPIRONOLACTONE. [Concomitant]
     Active Substance: SPIRONOLACTONE
     Indication: DIURETIC THERAPY
     Dosage: 13 MG, UNK
     Route: 048
     Dates: start: 20140913, end: 20140919
  5. ONDANSETRON [Concomitant]
     Active Substance: ONDANSETRON
     Indication: ANTIEMETIC SUPPORTIVE CARE
     Dosage: 6 MG
     Route: 042
     Dates: start: 20140909, end: 20140912
  6. MANNITOL. [Concomitant]
     Active Substance: MANNITOL
     Indication: DIURETIC THERAPY
     Dosage: 3 G
     Route: 042
     Dates: start: 20140913, end: 20140913
  7. MORPHINE [Concomitant]
     Active Substance: MORPHINE
     Dosage: 1.3 MG
     Route: 042
     Dates: start: 20140913, end: 20140913
  8. ROCURONIUM [Concomitant]
     Active Substance: ROCURONIUM BROMIDE
     Indication: MUSCLE RELAXANT THERAPY
     Dosage: 13 MG, UNK
     Route: 042
     Dates: start: 20140913, end: 20140913
  9. TACROLIMUS. [Concomitant]
     Active Substance: TACROLIMUS
     Indication: PROPHYLAXIS AGAINST GRAFT VERSUS HOST DISEASE
     Dosage: 0.8
     Route: 042
     Dates: start: 20140912, end: 20140913
  10. METHYLPREDNISOLONE. [Concomitant]
     Active Substance: METHYLPREDNISOLONE
     Indication: STEROID THERAPY
     Dosage: 28 MG
     Route: 042
     Dates: start: 20140911, end: 20140919
  11. POTASSIUM CHLORIDE. [Concomitant]
     Active Substance: POTASSIUM CHLORIDE
     Indication: SUPPLEMENTATION THERAPY
     Dosage: 14 MEQ
     Route: 042
     Dates: start: 20140912, end: 20140912
  12. FENOLDOPAM [Concomitant]
     Active Substance: FENOLDOPAM
     Indication: DIURETIC THERAPY
     Dosage: 1 MG
     Route: 042
     Dates: start: 20140911, end: 20140913
  13. RIFAXIMIN [Concomitant]
     Active Substance: RIFAXIMIN
     Indication: HYPERAMMONAEMIA
     Dosage: 126 MG, UNK
     Route: 048
     Dates: start: 20140913, end: 20140921
  14. LASIX [Concomitant]
     Active Substance: FUROSEMIDE
     Indication: FLUID RETENTION
     Dosage: UNK
     Dates: start: 20140910
  15. PHYTONADIONE. [Concomitant]
     Active Substance: PHYTONADIONE
     Dosage: 2 MG
     Route: 042
     Dates: start: 20140913, end: 20140914
  16. POTASSIUM PHOSPHATE [Concomitant]
     Active Substance: POTASSIUM PHOSPHATE
     Indication: SUPPLEMENTATION THERAPY
     Dosage: 3 MMOL
     Route: 042
     Dates: start: 20140912, end: 20140912
  17. URSODIOL. [Concomitant]
     Active Substance: URSODIOL
     Indication: PROPHYLAXIS
     Dosage: 150 MG
     Route: 048
     Dates: start: 20140811
  18. PLASMA, FRESH FROZEN [Concomitant]
     Active Substance: HUMAN PLASMA
  19. MILRINONE [Concomitant]
     Active Substance: MILRINONE
     Indication: CARDIAC DISORDER
  20. DEFIBROTIDE (INV) [Suspect]
     Active Substance: DEFIBROTIDE SODIUM
     Indication: VENOOCCLUSIVE LIVER DISEASE
     Dosage: 300 MG, DAILY 25 MG/KG, 25 MG/KG/DAY
     Route: 042
     Dates: start: 20140912, end: 20140913
  21. LACTULOSE. [Concomitant]
     Active Substance: LACTULOSE
     Indication: HYPERAMMONAEMIA
     Dosage: 14 G
     Route: 048
     Dates: start: 20140913, end: 20140916
  22. MORPHINE [Concomitant]
     Active Substance: MORPHINE
     Dosage: 2.4 MG
     Route: 042
     Dates: start: 20140910, end: 20140913
  23. MYCOPHENOLATE MOFETIL. [Concomitant]
     Active Substance: MYCOPHENOLATE MOFETIL
     Dosage: 360 MG
     Route: 048
     Dates: start: 20140912, end: 20140924
  24. ALDACTONE [Concomitant]
     Active Substance: SPIRONOLACTONE
     Indication: FLUID RETENTION
     Dosage: UNK
     Dates: start: 20140910
  25. CEFEPIME [Concomitant]
     Active Substance: CEFEPIME HYDROCHLORIDE
     Indication: INFECTION
     Dosage: 2250 MG
     Route: 042
     Dates: start: 20140912, end: 20140921
  26. PHYTONADIONE. [Concomitant]
     Active Substance: PHYTONADIONE
     Indication: SUPPLEMENTATION THERAPY
     Dosage: 2 MG
     Route: 042
     Dates: start: 20140910, end: 20140912
  27. DIURIL [Concomitant]
     Active Substance: CHLOROTHIAZIDE
     Indication: FLUID RETENTION
     Dosage: UNK
     Dates: start: 20140910
  28. CHLOROTHIAZIDE. [Concomitant]
     Active Substance: CHLOROTHIAZIDE
     Indication: DIURETIC THERAPY
     Dosage: 50 MG
     Route: 042
     Dates: start: 20140910, end: 20140913
  29. CHLOROTHIAZIDE. [Concomitant]
     Active Substance: CHLOROTHIAZIDE
     Dosage: 65 MG
     Route: 042
     Dates: start: 20140913, end: 20140913
  30. FUROSEMIDE. [Concomitant]
     Active Substance: FUROSEMIDE
     Indication: DIURETIC THERAPY
     Dosage: 104 MG
     Route: 042
     Dates: start: 20140910, end: 20140913
  31. FUROSEMIDE. [Concomitant]
     Active Substance: FUROSEMIDE
     Dosage: 78 MG
     Dates: start: 20140913, end: 20140914
  32. MIDAZOLAM [Concomitant]
     Active Substance: MIDAZOLAM\MIDAZOLAM HYDROCHLORIDE
     Indication: SEDATION
     Dosage: 2.6 MG
     Route: 042
     Dates: start: 20140913, end: 20140913
  33. MORPHINE [Concomitant]
     Active Substance: MORPHINE
     Indication: SEDATION
     Dosage: 0.6 MG
     Route: 042
     Dates: start: 20140912, end: 20140912
  34. SODIUM PHOSPHATE [Concomitant]
     Active Substance: SODIUM PHOSPHATE
     Indication: SUPPLEMENTATION THERAPY
     Dosage: 3 MMOL
     Route: 042
     Dates: start: 20140912, end: 20140912
  35. VANCOMYCIN [Concomitant]
     Active Substance: VANCOMYCIN
     Indication: INFECTION
     Dosage: 420 MG
     Route: 042
     Dates: start: 20140912, end: 20140913
  36. VANCOMYCIN [Concomitant]
     Active Substance: VANCOMYCIN
     Dosage: 250 MG, UNK
     Route: 042
     Dates: start: 20140913, end: 20140915
  37. DIPHENHYDRAMINE. [Concomitant]
     Active Substance: DIPHENHYDRAMINE
     Indication: HYPERSENSITIVITY
     Dosage: 24 MG
     Route: 042
     Dates: start: 20140908, end: 20140919
  38. METOCLOPRAMIDE. [Concomitant]
     Active Substance: METOCLOPRAMIDE
     Indication: GASTRIC HYPOMOTILITY
     Dosage: 1.2 MG
     Route: 042
     Dates: start: 20140828, end: 20140912
  39. INSULIN HUMAN [Concomitant]
     Active Substance: INSULIN HUMAN
     Indication: HYPERGLYCAEMIA
     Dosage: 125 U, UNK
     Route: 042
     Dates: start: 20140913, end: 20140913
  40. AMINOPHYLLINE. [Concomitant]
     Active Substance: AMINOPHYLLINE
     Indication: FLUID RETENTION
     Dosage: UNK
     Dates: start: 20140910
  41. MIDAZOLAM [Concomitant]
     Active Substance: MIDAZOLAM\MIDAZOLAM HYDROCHLORIDE
     Dosage: 2 MG, QD
     Route: 042
     Dates: start: 20140913, end: 20140914
  42. MORPHINE [Concomitant]
     Active Substance: MORPHINE
     Dosage: 4 MG
     Route: 042
     Dates: start: 20140913, end: 20140914
  43. POTASSIUM CHLORIDE. [Concomitant]
     Active Substance: POTASSIUM CHLORIDE
     Dosage: 6.5 MEQ
     Route: 042
     Dates: start: 20140912, end: 20140912
  44. PROTONIX [Concomitant]
     Active Substance: PANTOPRAZOLE SODIUM
     Indication: ABDOMINAL DISCOMFORT
     Dosage: 12.5 MG, UNK
     Route: 042
     Dates: start: 20140909

REACTIONS (5)
  - Pulmonary oedema [None]
  - Acute respiratory distress syndrome [None]
  - Hepatic failure [None]
  - Condition aggravated [None]
  - Cardiomyopathy [Recovered/Resolved]

NARRATIVE: CASE EVENT DATE: 20140913
